FAERS Safety Report 7671580-8 (Version None)
Quarter: 2011Q3

REPORT INFORMATION
  Report Type: 
  Country: None (occurrence: None)
  Receive Date: 20110809
  Receipt Date: 20110726
  Transmission Date: 20111222
  Serious: Yes (Other)
  Sender: FDA-Public Use
  Company Number: RS-UCBSA-037950

PATIENT
  Sex: Male

DRUGS (2)
  1. BISOPROLOL FUMARATE [Concomitant]
     Indication: ARRHYTHMIA
     Dosage: IN MORNING, LAST TWO YEARS
  2. XYZAL [Suspect]
     Indication: RHINITIS ALLERGIC
     Route: 048
     Dates: start: 20110601, end: 20110610

REACTIONS (1)
  - EPISTAXIS [None]
